FAERS Safety Report 25360219 (Version 1)
Quarter: 2025Q2

REPORT INFORMATION
  Report Type: Spontaneous
  Country: US (occurrence: US)
  Receive Date: 20250527
  Receipt Date: 20250527
  Transmission Date: 20250717
  Serious: Yes (Other)
  Sender: CIPLA
  Company Number: US-CIPLA LTD.-2025US06159

PATIENT

DRUGS (1)
  1. CARBOPLATIN [Suspect]
     Active Substance: CARBOPLATIN
     Indication: Ovarian cancer
     Route: 023

REACTIONS (4)
  - Hypoxia [Unknown]
  - Erythema [Unknown]
  - Dyspnoea [Unknown]
  - Urticaria [Unknown]
